FAERS Safety Report 25167920 (Version 3)
Quarter: 2025Q2

REPORT INFORMATION
  Report Type: Spontaneous
  Country: GR (occurrence: GR)
  Receive Date: 20250407
  Receipt Date: 20250604
  Transmission Date: 20250717
  Serious: No
  Sender: PFIZER
  Company Number: GR-PFIZER INC-202500067940

PATIENT
  Sex: Female

DRUGS (1)
  1. ENBREL [Suspect]
     Active Substance: ETANERCEPT
     Dates: start: 202405

REACTIONS (2)
  - Device malfunction [Unknown]
  - Drug dose omission by device [Unknown]
